FAERS Safety Report 6249724-4 (Version None)
Quarter: 2009Q2

REPORT INFORMATION
  Report Type: 
  Country: None (occurrence: None)
  Receive Date: 20090629
  Receipt Date: 20090624
  Transmission Date: 20091009
  Serious: Yes (Hospitalization)
  Sender: FDA-Public Use
  Company Number: FR-BRISTOL-MYERS SQUIBB COMPANY-14679468

PATIENT
  Age: 66 Year
  Sex: Female

DRUGS (5)
  1. BICNU [Suspect]
     Indication: CENTRAL NERVOUS SYSTEM LYMPHOMA
     Dosage: 100 MG/M2 D3
     Route: 042
     Dates: start: 20090506, end: 20090506
  2. METHOTREXATE-TEVA [Suspect]
     Indication: CENTRAL NERVOUS SYSTEM LYMPHOMA
     Dosage: 3000 MG/M2 D1,D15 ON DAY 15= 19MAY09 DRUG NOT ADMINISTERED
     Route: 042
     Dates: start: 20090504, end: 20090504
  3. ETOPOSIDE [Suspect]
     Indication: CENTRAL NERVOUS SYSTEM LYMPHOMA
     Dosage: 1 ADMINISTRATION 100MG/M2 D2,D3
     Route: 042
     Dates: start: 20090505, end: 20090506
  4. ONDANSETRON HCL [Concomitant]
     Dosage: 1 DF=8 MG/4ML
     Route: 042
     Dates: start: 20090504
  5. METHYLPREDNISOLONE [Concomitant]
     Dosage: 60 MG/M2 D1,D2,D3,D4,D5
     Route: 042
     Dates: start: 20090504

REACTIONS (1)
  - PNEUMOCYSTIS JIROVECI PNEUMONIA [None]
